FAERS Safety Report 13977144 (Version 2)
Quarter: 2018Q3

REPORT INFORMATION
  Report Type: Spontaneous
  Country: US (occurrence: US)
  Receive Date: 20170914
  Receipt Date: 20180913
  Transmission Date: 20181010
  Serious: No
  Sender: FDA-Public Use
  Company Number: US-ASTELLAS-2017US021980

PATIENT
  Sex: Male

DRUGS (1)
  1. XTANDI [Suspect]
     Active Substance: ENZALUTAMIDE
     Indication: PROSTATE CANCER
     Route: 065

REACTIONS (10)
  - Somnolence [Unknown]
  - Dizziness [Unknown]
  - Fatigue [Unknown]
  - Malaise [Unknown]
  - Abdominal discomfort [Unknown]
  - Musculoskeletal pain [Not Recovered/Not Resolved]
  - Gait disturbance [Not Recovered/Not Resolved]
  - Tooth disorder [Unknown]
  - Nausea [Unknown]
  - Back pain [Not Recovered/Not Resolved]
